FAERS Safety Report 10058020 (Version 1)
Quarter: 2014Q2

REPORT INFORMATION
  Report Type: Spontaneous
  Country: US (occurrence: None)
  Receive Date: 20140403
  Receipt Date: 20140403
  Transmission Date: 20141212
  Serious: Yes (Disabling)
  Sender: FDA-Public Use
  Company Number: None

PATIENT
  Age: 69 Year
  Sex: Female
  Weight: 76.2 kg

DRUGS (1)
  1. JANUMET [Suspect]
     Dosage: 1, BID, ORAL
     Route: 048

REACTIONS (1)
  - Pancreatic carcinoma [None]
